FAERS Safety Report 5828707-X (Version None)
Quarter: 2008Q3

REPORT INFORMATION
  Report Type: 
  Country: None (occurrence: None)
  Receive Date: 20080729
  Receipt Date: 20080729
  Transmission Date: 20090109
  Serious: Yes (Other)
  Sender: FDA-Public Use
  Company Number: None

PATIENT
  Age: 33 Year
  Sex: Female
  Weight: 86.1834 kg

DRUGS (1)
  1. CHANTIX [Suspect]
     Indication: SMOKING CESSATION THERAPY
     Dosage: 1MG 2X/DAILY PO
     Route: 048
     Dates: start: 20080313, end: 20080602

REACTIONS (3)
  - BALANCE DISORDER [None]
  - LETHARGY [None]
  - MULTIPLE SCLEROSIS [None]
